FAERS Safety Report 8558235-2 (Version None)
Quarter: 2012Q3

REPORT INFORMATION
  Report Type: 
  Country: None (occurrence: None)
  Receive Date: 20120801
  Receipt Date: 20120719
  Transmission Date: 20120928
  Serious: Yes (Hospitalization)
  Sender: FDA-Public Use
  Company Number: US-JNJFOC-20120607999

PATIENT
  Age: 18 Year
  Sex: Female

DRUGS (5)
  1. PREZISTA [Suspect]
     Indication: HIV INFECTION
     Route: 048
     Dates: start: 20111115, end: 20120516
  2. RITONAVIR [Suspect]
     Indication: HIV INFECTION
     Route: 048
     Dates: start: 20111115, end: 20120516
  3. EPZICOM [Suspect]
     Indication: HIV INFECTION
     Route: 048
     Dates: start: 20111115, end: 20120516
  4. ETRAVIRINE [Suspect]
     Indication: HIV INFECTION
     Route: 048
     Dates: start: 20111115, end: 20120516
  5. ISENTRESS [Suspect]
     Indication: HIV INFECTION
     Route: 048
     Dates: start: 20111115, end: 20120516

REACTIONS (2)
  - MATERNAL EXPOSURE DURING PREGNANCY [None]
  - AMNIOTIC FLUID VOLUME DECREASED [None]
